FAERS Safety Report 16211990 (Version 1)
Quarter: 2019Q2

REPORT INFORMATION
  Report Type: Spontaneous
  Country: AR (occurrence: AR)
  Receive Date: 20190418
  Receipt Date: 20190418
  Transmission Date: 20190711
  Serious: Yes (Other)
  Sender: FDA-Public Use
  Company Number: AR-BAYER-2019-075567

PATIENT
  Sex: Female

DRUGS (2)
  1. MIRENA [Suspect]
     Active Substance: LEVONORGESTREL
     Dosage: 20 MCG/24HR, CONT
     Route: 015
  2. MIRENA [Suspect]
     Active Substance: LEVONORGESTREL

REACTIONS (4)
  - Vascular injury [Unknown]
  - Haemorrhage [Unknown]
  - Medical device pain [Unknown]
  - Menorrhagia [Unknown]
